FAERS Safety Report 4514617-7 (Version None)
Quarter: 2004Q3

REPORT INFORMATION
  Report Type: 
  Country: None (occurrence: None)
  Receive Date: 20040927
  Receipt Date: 20040319
  Transmission Date: 20050211
  Serious: No
  Sender: FDA-Public Use
  Company Number: US070457

PATIENT
  Sex: Male

DRUGS (5)
  1. NEULASTA [Suspect]
     Indication: CHEMOTHERAPY
     Dosage: 1 IN 1 DAYS
     Dates: start: 20030101, end: 20030101
  2. DOXORUBICIN HCL [Concomitant]
  3. BLEOMYCIN SULFATE [Concomitant]
  4. VINBLASTINE SULFATE [Concomitant]
  5. DACARBAZINE [Concomitant]

REACTIONS (4)
  - CHILLS [None]
  - HYPERHIDROSIS [None]
  - INCOHERENT [None]
  - VOMITING [None]
